FAERS Safety Report 10448275 (Version 2)
Quarter: 2014Q3

REPORT INFORMATION
  Report Type: Report from Study
  Country: MX (occurrence: MX)
  Receive Date: 20140911
  Receipt Date: 20140929
  Transmission Date: 20150326
  Serious: Yes (Other)
  Sender: FDA-Public Use
  Company Number: PHHY2014MX117497

PATIENT
  Age: 58 Year
  Sex: Female

DRUGS (1)
  1. EXFORGE [Suspect]
     Active Substance: AMLODIPINE BESYLATE\VALSARTAN
     Indication: HYPERTENSION
     Dosage: 1 DF(160/5MG), DAILY
     Route: 048

REACTIONS (6)
  - Blindness unilateral [Not Recovered/Not Resolved]
  - Optic nerve injury [Not Recovered/Not Resolved]
  - Constipation [Recovering/Resolving]
  - Eye pain [Not Recovered/Not Resolved]
  - Cataract [Unknown]
  - Eye inflammation [Not Recovered/Not Resolved]
